FAERS Safety Report 5747460-1 (Version None)
Quarter: 2008Q2

REPORT INFORMATION
  Report Type: 
  Country: None (occurrence: None)
  Receive Date: 20080523
  Receipt Date: 20080516
  Transmission Date: 20081010
  Serious: Yes (Hospitalization)
  Sender: FDA-Public Use
  Company Number: BR-BAYER-200814218LA

PATIENT
  Age: 33 Year
  Sex: Female

DRUGS (5)
  1. BETAFERON [Suspect]
     Indication: MULTIPLE SCLEROSIS
     Route: 058
     Dates: start: 20040101
  2. RIVOTRIL [Concomitant]
     Indication: SLEEP DISORDER
     Dosage: TOTAL DAILY DOSE: 2 MG  UNIT DOSE: 2 MG
     Route: 048
     Dates: start: 20030101, end: 20080101
  3. LORAX [Concomitant]
     Indication: SLEEP DISORDER
     Dosage: TOTAL DAILY DOSE: 2 MG  UNIT DOSE: 2 MG
     Route: 048
     Dates: start: 20080101
  4. AMITRIPTYLINE HCL [Concomitant]
     Indication: DEPRESSIVE SYMPTOM
     Dosage: TOTAL DAILY DOSE: 1 DF
     Route: 048
     Dates: start: 20030101, end: 20080101
  5. FLUOXETINE [Concomitant]
     Indication: DEPRESSIVE SYMPTOM
     Dosage: TOTAL DAILY DOSE: 20 MG  UNIT DOSE: 20 MG
     Route: 048
     Dates: start: 20030101, end: 20080101

REACTIONS (7)
  - ASTHENIA [None]
  - DEPRESSION [None]
  - HEADACHE [None]
  - IMMUNE SYSTEM DISORDER [None]
  - INFLUENZA LIKE ILLNESS [None]
  - MENTAL DISORDER [None]
  - PYREXIA [None]
